FAERS Safety Report 15010006 (Version 2)
Quarter: 2019Q2

REPORT INFORMATION
  Report Type: Spontaneous
  Country: US (occurrence: US)
  Receive Date: 20180614
  Receipt Date: 20190401
  Transmission Date: 20190711
  Serious: No
  Sender: FDA-Public Use
  Company Number: US-PFIZER INC-2018237405

PATIENT
  Age: 68 Year
  Sex: Female
  Weight: 68.27 kg

DRUGS (1)
  1. SOMAVERT [Suspect]
     Active Substance: PEGVISOMANT
     Indication: ACROMEGALY
     Dosage: UNK
     Dates: start: 2005

REACTIONS (3)
  - Fat tissue increased [Not Recovered/Not Resolved]
  - Poor quality product administered [Unknown]
  - Product complaint [Unknown]
